FAERS Safety Report 11699056 (Version 2)
Quarter: 2015Q4

REPORT INFORMATION
  Report Type: Spontaneous
  Country: GB (occurrence: GB)
  Receive Date: 20151104
  Receipt Date: 20151105
  Transmission Date: 20160304
  Serious: Yes (Hospitalization)
  Sender: FDA-Public Use
  Company Number: PHHY2015GB139513

PATIENT
  Age: 61 Year
  Sex: Female

DRUGS (3)
  1. PARSTELIN [Suspect]
     Active Substance: ACETAMINOPHEN
     Indication: DEPRESSION
     Dosage: 3 DF (DAILY DOSE), ORAL
     Route: 048
  2. DIAZEPAM. [Suspect]
     Active Substance: DIAZEPAM
     Indication: PRODUCT USED FOR UNKNOWN INDICATION
     Route: 065
  3. TYLEX                              /00116401/ [Suspect]
     Active Substance: ACETAMINOPHEN\CODEINE PHOSPHATE
     Indication: PRODUCT USED FOR UNKNOWN INDICATION
     Route: 065

REACTIONS (6)
  - Hypertension [Recovering/Resolving]
  - Depressed level of consciousness [Unknown]
  - Hypothermia [Recovering/Resolving]
  - Trismus [Unknown]
  - Pyrexia [Unknown]
  - Blood creatine phosphokinase increased [Recovering/Resolving]
